FAERS Safety Report 7647700-8 (Version None)
Quarter: 2011Q3

REPORT INFORMATION
  Report Type: 
  Country: None (occurrence: None)
  Receive Date: 20110801
  Receipt Date: 20110801
  Transmission Date: 20111222
  Serious: Yes (Other)
  Sender: FDA-Public Use
  Company Number: None

PATIENT
  Age: 29 Year
  Sex: Female
  Weight: 68.038 kg

DRUGS (1)
  1. AVELOX [Suspect]
     Indication: PHARYNGITIS STREPTOCOCCAL
     Dosage: 400 MG
     Route: 048
     Dates: start: 20110727, end: 20110728

REACTIONS (7)
  - INSOMNIA [None]
  - PALPITATIONS [None]
  - DEPRESSION [None]
  - DIZZINESS [None]
  - ANXIETY [None]
  - TREMOR [None]
  - FEELING OF DESPAIR [None]
